FAERS Safety Report 21139688 (Version 3)
Quarter: 2022Q4

REPORT INFORMATION
  Report Type: Spontaneous
  Country: DE (occurrence: DE)
  Receive Date: 20220727
  Receipt Date: 20221004
  Transmission Date: 20230113
  Serious: Yes (Death)
  Sender: FDA-Public Use
  Company Number: DE-BIOGEN-2022BI01141999

PATIENT
  Age: 34 Year
  Sex: Male

DRUGS (1)
  1. TYSABRI [Suspect]
     Active Substance: NATALIZUMAB
     Indication: Multiple sclerosis
     Route: 050
     Dates: start: 20100930, end: 20120705

REACTIONS (1)
  - Death [Fatal]

NARRATIVE: CASE EVENT DATE: 20220720
